FAERS Safety Report 4773543-9 (Version None)
Quarter: 2005Q3

REPORT INFORMATION
  Report Type: 
  Country: None (occurrence: None)
  Receive Date: 20050920
  Receipt Date: 20041111
  Transmission Date: 20060218
  Serious: No
  Sender: FDA-Public Use
  Company Number: US-BRISTOL-MYERS SQUIBB COMPANY-12764197

PATIENT
  Sex: Male

DRUGS (5)
  1. BUSPAR [Suspect]
     Indication: ANXIETY
  2. SAME [Concomitant]
  3. VITAMIN B-12 [Concomitant]
  4. FOLIC ACID [Concomitant]
  5. ZOLOFT [Concomitant]

REACTIONS (2)
  - DIZZINESS [None]
  - HEADACHE [None]
